FAERS Safety Report 14276720 (Version 2)
Quarter: 2017Q4

REPORT INFORMATION
  Report Type: Report from Study
  Country: IT (occurrence: IT)
  Receive Date: 20171212
  Receipt Date: 20171221
  Transmission Date: 20180321
  Serious: Yes (Other)
  Sender: FDA-Public Use
  Company Number: IT-PFIZER INC-2017523849

PATIENT
  Age: 52 Year
  Sex: Female
  Weight: 53 kg

DRUGS (2)
  1. DOCETAXEL. [Suspect]
     Active Substance: DOCETAXEL
     Indication: NON-SMALL CELL LUNG CANCER
     Dosage: UNK
     Dates: start: 20150309, end: 20150618
  2. BIBF 1120 [Suspect]
     Active Substance: NINTEDANIB
     Indication: NON-SMALL CELL LUNG CANCER
     Dosage: 4 DF, 1X/DAY
     Dates: start: 201503

REACTIONS (2)
  - Hepatotoxicity [Recovered/Resolved]
  - Neutropenia [Unknown]
